FAERS Safety Report 25331196 (Version 2)
Quarter: 2025Q2

REPORT INFORMATION
  Report Type: Spontaneous
  Country: US (occurrence: US)
  Receive Date: 20250519
  Receipt Date: 20250521
  Transmission Date: 20250717
  Serious: No
  Sender: PFIZER
  Company Number: US-PFIZER INC-PV202500059148

PATIENT
  Age: 49 Year
  Sex: Female

DRUGS (2)
  1. XELJANZ XR [Suspect]
     Active Substance: TOFACITINIB CITRATE
     Indication: Rheumatoid arthritis
     Dosage: 11 MG, 1X/DAY (TABLET BY MOUTH 1 TIME A DAY)
     Route: 048
     Dates: start: 202411, end: 2025
  2. RINVOQ [Concomitant]
     Active Substance: UPADACITINIB

REACTIONS (1)
  - Drug ineffective [Unknown]
